FAERS Safety Report 9869776 (Version 1)
Quarter: 2014Q1

REPORT INFORMATION
  Report Type: Report from Study
  Country: US (occurrence: US)
  Receive Date: 20140205
  Receipt Date: 20140205
  Transmission Date: 20141002
  Serious: Yes (Hospitalization)
  Sender: FDA-Public Use
  Company Number: US-ASTELLAS-2014US001015

PATIENT
  Age: 60 Year
  Sex: Female
  Weight: 74 kg

DRUGS (2)
  1. ERLOTINIB TABLET [Suspect]
     Indication: NON-SMALL CELL LUNG CANCER
     Dosage: 150 MG, UID/QD
     Route: 048
     Dates: start: 20131011, end: 20131204
  2. CABOZANTINIB [Suspect]
     Indication: NON-SMALL CELL LUNG CANCER
     Dosage: 40 MG, UID/QD
     Route: 048
     Dates: start: 20131011, end: 20131204

REACTIONS (5)
  - Abdominal pain [Recovered/Resolved with Sequelae]
  - Dehydration [Recovered/Resolved with Sequelae]
  - Nausea [Recovered/Resolved with Sequelae]
  - Vomiting [Recovered/Resolved with Sequelae]
  - Diarrhoea [Recovered/Resolved with Sequelae]
